FAERS Safety Report 7441124-4 (Version None)
Quarter: 2011Q2

REPORT INFORMATION
  Report Type: 
  Country: None (occurrence: None)
  Receive Date: 20110427
  Receipt Date: 20110414
  Transmission Date: 20111010
  Serious: Yes (Other)
  Sender: FDA-Public Use
  Company Number: ES-MYLANLABS-2011S1008126

PATIENT
  Age: 80 Year
  Sex: Male

DRUGS (4)
  1. GALANTAMINE HYDROBROMIDE [Suspect]
     Indication: DEMENTIA ALZHEIMER'S TYPE
     Dosage: INCREASING DOSES INITIALLY PRESCRIBED; 24MG/D FROM SEP 08
     Route: 065
  2. TORSEMIDE [Concomitant]
     Indication: HYPERTENSION
     Route: 065
  3. GEMFIBROZIL [Concomitant]
     Indication: DYSLIPIDAEMIA
     Route: 065
  4. GALANTAMINE HYDROBROMIDE [Suspect]
     Dosage: 24 MG/DAY SINCE SEP 08
     Route: 065

REACTIONS (1)
  - MYOCLONUS [None]
